FAERS Safety Report 7912251-X (Version None)
Quarter: 2011Q4

REPORT INFORMATION
  Report Type: 
  Country: None (occurrence: None)
  Receive Date: 20111114
  Receipt Date: 20111109
  Transmission Date: 20120403
  Serious: Yes (Other)
  Sender: FDA-Public Use
  Company Number: GB-MERCK-1111GBR00037

PATIENT
  Age: 75 Year
  Sex: Male
  Weight: 86 kg

DRUGS (9)
  1. DIGOXIN [Concomitant]
     Route: 065
     Dates: start: 20110802
  2. ALLOPURINOL [Concomitant]
     Route: 065
     Dates: start: 20110802
  3. AMLODIPINE [Concomitant]
     Route: 065
     Dates: start: 20110802
  4. ASPIRIN [Concomitant]
     Route: 065
     Dates: start: 20110802
  5. METFORMIN [Concomitant]
     Route: 065
     Dates: start: 20110704
  6. ATORVASTATIN [Concomitant]
     Route: 065
     Dates: start: 20110802
  7. ENALAPRIL MALEATE [Concomitant]
     Route: 065
     Dates: start: 20110704
  8. ZETIA [Suspect]
     Route: 048
     Dates: start: 20111028
  9. SOTALOL HYDROCHLORIDE [Concomitant]
     Route: 065
     Dates: start: 20110704

REACTIONS (1)
  - BLADDER NEOPLASM SURGERY [None]
